FAERS Safety Report 18394426 (Version 1)
Quarter: 2020Q4

REPORT INFORMATION
  Report Type: Report from Study
  Country: EG (occurrence: EG)
  Receive Date: 20201017
  Receipt Date: 20201017
  Transmission Date: 20210114
  Serious: Yes (Other)
  Sender: FDA-Public Use
  Company Number: NVSC2020EG271988

PATIENT
  Age: 47 Year
  Sex: Male

DRUGS (1)
  1. GLIVEC [Suspect]
     Active Substance: IMATINIB MESYLATE
     Indication: CHRONIC MYELOID LEUKAEMIA
     Dosage: 400 MG, (DAILY, 6MONTHS AGO)
     Route: 065
     Dates: start: 2016

REACTIONS (1)
  - Polymerase chain reaction positive [Recovering/Resolving]

NARRATIVE: CASE EVENT DATE: 202004
